FAERS Safety Report 12821059 (Version 2)
Quarter: 2016Q4

REPORT INFORMATION
  Report Type: Spontaneous
  Country: US (occurrence: US)
  Receive Date: 20161007
  Receipt Date: 20161010
  Transmission Date: 20170207
  Serious: No
  Sender: FDA-Public Use
  Company Number: US-BEH-2016073981

PATIENT
  Sex: Female
  Weight: 54.4 kg

DRUGS (12)
  1. CYCLOBENZAPRINE [Concomitant]
     Active Substance: CYCLOBENZAPRINE
  2. HEPARIN [Concomitant]
     Active Substance: HEPARIN SODIUM
  3. CLONAZEPAM. [Concomitant]
     Active Substance: CLONAZEPAM
  4. LINZESS [Concomitant]
     Active Substance: LINACLOTIDE
  5. ROPINIROLE. [Concomitant]
     Active Substance: ROPINIROLE
  6. CYMBALTA [Concomitant]
     Active Substance: DULOXETINE HYDROCHLORIDE
  7. BERINERT [Suspect]
     Active Substance: HUMAN C1-ESTERASE INHIBITOR
     Indication: COMPLEMENT DEFICIENCY DISEASE
     Dosage: 1500 IU, PRN
     Route: 042
     Dates: start: 20150204
  8. SODIUM CHLORIDE. [Concomitant]
     Active Substance: SODIUM CHLORIDE
  9. STERILE WATER [Concomitant]
     Active Substance: WATER
  10. EPIPEN [Concomitant]
     Active Substance: EPINEPHRINE
  11. PHILLIPS                           /00061602/ [Concomitant]
  12. TRAMADOL. [Concomitant]
     Active Substance: TRAMADOL

REACTIONS (2)
  - Nasal discomfort [Unknown]
  - Oropharyngeal pain [Unknown]
